FAERS Safety Report 8473498-X (Version None)
Quarter: 2012Q2

REPORT INFORMATION
  Report Type: 
  Country: None (occurrence: None)
  Receive Date: 20120625
  Receipt Date: 20120625
  Transmission Date: 20120825
  Serious: Yes (Other)
  Sender: FDA-Public Use
  Company Number: None

PATIENT
  Sex: Female

DRUGS (3)
  1. CYNTHROID [Concomitant]
  2. ASMANEX TWISTHALER [Suspect]
     Indication: LUNG DISORDER
     Dosage: 200MCG 2 TIMES A DAY OTHER ONCE
     Route: 050
  3. CEFTIN [Concomitant]

REACTIONS (5)
  - HYPOAESTHESIA ORAL [None]
  - NASAL DISCOMFORT [None]
  - DYSPNOEA [None]
  - CHEST PAIN [None]
  - RESPIRATORY TRACT INFLAMMATION [None]
